FAERS Safety Report 15126368 (Version 1)
Quarter: 2018Q3

REPORT INFORMATION
  Report Type: Spontaneous
  Country: FR (occurrence: FR)
  Receive Date: 20180710
  Receipt Date: 20180710
  Transmission Date: 20181010
  Serious: Yes (Other)
  Sender: FDA-Public Use
  Company Number: FR-SA-2018SA177000

PATIENT
  Sex: Male

DRUGS (1)
  1. ZOLPIDEM TARTRATE. [Suspect]
     Active Substance: ZOLPIDEM TARTRATE
     Dosage: NON RENSEIGN?E
     Route: 065
     Dates: start: 20171215

REACTIONS (2)
  - Drug dependence [Not Recovered/Not Resolved]
  - Theft [Not Recovered/Not Resolved]

NARRATIVE: CASE EVENT DATE: 20171215
